FAERS Safety Report 9685261 (Version 2)
Quarter: 2014Q1

REPORT INFORMATION
  Report Type: Spontaneous
  Country: IE (occurrence: IE)
  Receive Date: 20131113
  Receipt Date: 20140217
  Transmission Date: 20141002
  Serious: Yes (Other)
  Sender: FDA-Public Use
  Company Number: IE-JNJFOC-20131104630

PATIENT
  Age: 37 Year
  Sex: Female
  Weight: 56 kg

DRUGS (13)
  1. DUROGESIC DTRANS [Suspect]
     Indication: ENDOCRINE NEOPLASM
     Route: 062
     Dates: start: 20130809
  2. EFFENTORA [Concomitant]
     Indication: BREAKTHROUGH PAIN
     Route: 065
     Dates: start: 2011
  3. EFFENTORA [Concomitant]
     Indication: BREAKTHROUGH PAIN
     Route: 065
  4. DIFENE [Concomitant]
     Indication: PAIN
     Route: 065
  5. DIFENE [Concomitant]
     Indication: PAIN
     Route: 065
     Dates: start: 2011
  6. LUSTRAL [Concomitant]
     Indication: DEPRESSION
     Route: 065
     Dates: start: 2011
  7. INNOHEP [Concomitant]
     Indication: COAGULOPATHY
     Route: 065
     Dates: start: 2011
  8. PREMPAK C [Concomitant]
     Indication: HORMONE THERAPY
     Route: 065
     Dates: start: 2011
  9. CALCICHEW [Concomitant]
     Indication: OSTEOPENIA
     Dosage: 500 UNSPECIFIED UNITS
     Route: 065
     Dates: start: 2011
  10. NEXIUM [Concomitant]
     Indication: GASTRIC DISORDER
     Route: 065
     Dates: start: 2011
  11. NEXIUM [Concomitant]
     Indication: NAUSEA
     Route: 065
     Dates: start: 2011
  12. MOTILIUM [Concomitant]
     Indication: NAUSEA
     Route: 065
     Dates: start: 2011
  13. STEMETIL [Concomitant]
     Indication: VERTIGO
     Route: 065
     Dates: start: 2011

REACTIONS (4)
  - Drug abuse [Unknown]
  - Drug ineffective [Unknown]
  - Product quality issue [Unknown]
  - Wrong technique in drug usage process [Unknown]
